FAERS Safety Report 10590989 (Version 2)
Quarter: 2014Q4

REPORT INFORMATION
  Report Type: Report from Study
  Country: CA (occurrence: CA)
  Receive Date: 20141118
  Receipt Date: 20141205
  Transmission Date: 20150529
  Serious: Yes (Other)
  Sender: FDA-Public Use
  Company Number: CA-ABBVIE-14K-028-1308603-00

PATIENT
  Sex: Female

DRUGS (2)
  1. HUMIRA [Suspect]
     Active Substance: ADALIMUMAB
     Indication: CROHN^S DISEASE
     Route: 058
     Dates: start: 20100605, end: 2014
  2. HUMIRA [Suspect]
     Active Substance: ADALIMUMAB
     Route: 058
     Dates: start: 2014

REACTIONS (8)
  - Cough [Unknown]
  - Fatigue [Not Recovered/Not Resolved]
  - Laryngitis [Unknown]
  - Rectal discharge [Not Recovered/Not Resolved]
  - Rhinorrhoea [Unknown]
  - Vomiting [Recovered/Resolved]
  - Gallbladder pain [Unknown]
  - Sinus congestion [Unknown]

NARRATIVE: CASE EVENT DATE: 2014
